FAERS Safety Report 8054448-7 (Version None)
Quarter: 2012Q1

REPORT INFORMATION
  Report Type: 
  Country: None (occurrence: None)
  Receive Date: 20120118
  Receipt Date: 20120109
  Transmission Date: 20120608
  Serious: Yes (Other)
  Sender: FDA-Public Use
  Company Number: US-ASTRAZENECA-2011SE53849

PATIENT
  Age: 77 Year
  Sex: Female

DRUGS (3)
  1. PULMICORT FLEXHALER [Suspect]
     Indication: BRONCHITIS
     Route: 055
  2. CRESTOR [Concomitant]
     Route: 048
  3. TOPROL-XL [Concomitant]
     Route: 048

REACTIONS (2)
  - MITRAL VALVE DISEASE [None]
  - OFF LABEL USE [None]
